FAERS Safety Report 21365902 (Version 1)
Quarter: 2022Q3

REPORT INFORMATION
  Report Type: Spontaneous
  Country: FR (occurrence: FR)
  Receive Date: 20220922
  Receipt Date: 20220922
  Transmission Date: 20221027
  Serious: Yes (Hospitalization)
  Sender: FDA-Public Use
  Company Number: None

PATIENT
  Age: 30 Year
  Sex: Male

DRUGS (6)
  1. SERTRALINE [Suspect]
     Active Substance: SERTRALINE HYDROCHLORIDE
  2. OXYBATE [Suspect]
     Active Substance: OXYBATE
  3. DIAZEPAM [Suspect]
     Active Substance: DIAZEPAM
  4. 3-METHYLMETHCATHINONE [Suspect]
     Active Substance: 3-METHYLMETHCATHINONE
  5. OXAZEPAM [Suspect]
     Active Substance: OXAZEPAM
  6. PENTYLONE [Suspect]
     Active Substance: PENTYLONE

REACTIONS (4)
  - Psychomotor hyperactivity [Not Recovered/Not Resolved]
  - Skin infection [Not Recovered/Not Resolved]
  - Suicide attempt [Not Recovered/Not Resolved]
  - Persecutory delusion [Not Recovered/Not Resolved]
